FAERS Safety Report 6211710-8 (Version None)
Quarter: 2009Q2

REPORT INFORMATION
  Report Type: 
  Country: None (occurrence: None)
  Receive Date: 20090522
  Receipt Date: 20090330
  Transmission Date: 20091009
  Serious: No
  Sender: FDA-Public Use
  Company Number: 8044443

PATIENT
  Age: 46 Year
  Sex: Male
  Weight: 90.7 kg

DRUGS (10)
  1. CIMZIA [Suspect]
     Indication: CROHN'S DISEASE
     Dosage: 400 MG SC
     Route: 058
     Dates: start: 20090220
  2. NEXIUM [Concomitant]
  3. ACTIMMUNE [Concomitant]
  4. LIALDA [Concomitant]
  5. OXYCODONE HCL [Concomitant]
  6. DIAZEPAM [Concomitant]
  7. STRESS B COMPLEX [Concomitant]
  8. FISH OIL [Concomitant]
  9. VITAMIN D [Concomitant]
  10. ASCORBIC ACID [Concomitant]

REACTIONS (2)
  - EYE DISORDER [None]
  - VISION BLURRED [None]
